FAERS Safety Report 10019746 (Version 1)
Quarter: 2014Q1

REPORT INFORMATION
  Report Type: Spontaneous
  Country: US (occurrence: US)
  Receive Date: 20140318
  Receipt Date: 20140318
  Transmission Date: 20141002
  Serious: No
  Sender: FDA-Public Use
  Company Number: US-GALDERMA-US14000087

PATIENT
  Age: 57 Year
  Sex: Female

DRUGS (8)
  1. MIRVASO (BRIMONIDINE) TOPICAL GEL, 0.33% [Suspect]
     Indication: ROSACEA
     Dosage: 0.33%
     Route: 061
     Dates: start: 201312, end: 20140107
  2. AVALON ORGANICS FACE WASH [Concomitant]
     Indication: THERAPEUTIC SKIN CARE TOPICAL
     Route: 061
     Dates: start: 201307
  3. EUCERIN MOISTURIZER WITH SPF 30 [Concomitant]
     Indication: DRY SKIN PROPHYLAXIS
     Route: 061
     Dates: start: 201307
  4. EUCERIN MOISTURIZER WITH SPF 30 [Concomitant]
     Indication: PROPHYLAXIS AGAINST SOLAR RADIATION
  5. FOSAMAX (ALENDRONATE) [Concomitant]
     Indication: OSTEOPENIA
     Dosage: 35 MG
     Route: 048
  6. BOBBIE BROWN CONCEALER [Concomitant]
     Indication: THERAPEUTIC SKIN CARE TOPICAL
     Route: 061
  7. MINERAL FOUNDATION [Concomitant]
     Indication: THERAPEUTIC SKIN CARE TOPICAL
     Route: 061
  8. AVALON ORGANICS VITAMIN C RENEWAL CREAM [Concomitant]
     Indication: DRY SKIN PROPHYLAXIS
     Route: 061
     Dates: start: 20131224

REACTIONS (3)
  - Condition aggravated [Recovered/Resolved]
  - Erythema [Recovered/Resolved]
  - Flushing [Recovered/Resolved]
